FAERS Safety Report 9832868 (Version 2)
Quarter: 2014Q1

REPORT INFORMATION
  Report Type: Spontaneous
  Country: FR (occurrence: FR)
  Receive Date: 20140121
  Receipt Date: 20140219
  Transmission Date: 20141002
  Serious: Yes (Life-Threatening)
  Sender: FDA-Public Use
  Company Number: FR-PFIZER INC-2014013533

PATIENT
  Age: 43 Year
  Sex: Male

DRUGS (9)
  1. TRIFLUCAN [Suspect]
     Dosage: UNK
     Route: 048
     Dates: start: 20131109
  2. SEROPRAM [Suspect]
     Dosage: UNK
     Route: 042
     Dates: start: 20131209, end: 20131210
  3. INVANZ [Suspect]
     Dosage: UNK
     Route: 042
     Dates: start: 20131109
  4. PIPERACILLIN/TAZOBACTAM [Suspect]
     Dosage: UNK
     Route: 042
     Dates: start: 20131109
  5. CANCIDAS [Suspect]
     Dosage: UNK
     Route: 042
     Dates: start: 20131109
  6. BECOTIDE [Concomitant]
  7. VENTOLINE [Concomitant]
  8. CEFOTAXIME [Concomitant]
     Indication: PANCREATITIS
     Dosage: UNK
  9. FLAGYL ^AVENTIS^ [Concomitant]
     Indication: PANCREATITIS
     Dosage: UNK
     Dates: start: 20130801

REACTIONS (1)
  - Atrioventricular block complete [Recovered/Resolved with Sequelae]
